FAERS Safety Report 11114888 (Version 1)
Quarter: 2015Q2

REPORT INFORMATION
  Report Type: Spontaneous
  Country: US (occurrence: None)
  Receive Date: 20150514
  Receipt Date: 20150514
  Transmission Date: 20150821
  Serious: Yes (Other)
  Sender: FDA-Public Use
  Company Number: None

PATIENT
  Age: 68 Year
  Sex: Male
  Weight: 99.79 kg

DRUGS (4)
  1. STATIN [Concomitant]
     Active Substance: UNSPECIFIED INGREDIENT
  2. BLOOD PRESSURE MED [Concomitant]
  3. CLARITHROMYCIN 500MG [Suspect]
     Active Substance: CLARITHROMYCIN
     Indication: INFECTION
     Dates: start: 20150506, end: 20150513
  4. GOUT MED [Concomitant]

REACTIONS (5)
  - Dysphonia [None]
  - Swelling face [None]
  - Swollen tongue [None]
  - Speech disorder [None]
  - Abscess oral [None]

NARRATIVE: CASE EVENT DATE: 20150513
